FAERS Safety Report 5602435-8 (Version None)
Quarter: 2008Q1

REPORT INFORMATION
  Report Type: 
  Country: None (occurrence: None)
  Receive Date: 20080122
  Receipt Date: 20080116
  Transmission Date: 20080703
  Serious: Yes (Other)
  Sender: FDA-Public Use
  Company Number: 163-20785-08010438

PATIENT
  Age: 35 Year
  Sex: Female

DRUGS (1)
  1. THALOMID [Suspect]
     Indication: MULTIPLE MYELOMA
     Dosage: 200 MG, 1 IN 1 D, ORAL
     Route: 048
     Dates: start: 20071201, end: 20080101

REACTIONS (2)
  - BLOOD HUMAN CHORIONIC GONADOTROPIN INCREASED [None]
  - BONE MARROW TRANSPLANT [None]
